FAERS Safety Report 15083762 (Version 10)
Quarter: 2020Q3

REPORT INFORMATION
  Report Type: Spontaneous
  Country: FR (occurrence: FR)
  Receive Date: 20180628
  Receipt Date: 20190820
  Transmission Date: 20201104
  Serious: Yes (Other)
  Sender: FDA-Public Use
  Company Number: FR-TEVA-2018-FR-918354

PATIENT
  Age: 1 Day
  Sex: Male
  Weight: 1.89 kg

DRUGS (51)
  1. CHLORHYDRATE DE PROPRANOLOL [Suspect]
     Active Substance: PROPRANOLOL HYDROCHLORIDE
     Indication: HYPERTENSION
     Dosage: 80 MILLIGRAM DAILY;
     Route: 064
     Dates: start: 20170516
  2. GLICLAZIDE [Suspect]
     Active Substance: GLICLAZIDE
     Indication: TYPE 2 DIABETES MELLITUS
     Dosage: 120 MILLIGRAM DAILY;
     Route: 064
     Dates: start: 20160930, end: 20170224
  3. LAROXYL [Suspect]
     Active Substance: AMITRIPTYLINE HYDROCHLORIDE
     Indication: DIABETIC NEUROPATHY
     Dosage: 2 DOSAGE FORMS DAILY;
     Route: 064
     Dates: start: 20160930, end: 20170914
  4. FORLAX [Suspect]
     Active Substance: POLYETHYLENE GLYCOL 4000
     Indication: CONSTIPATION
     Route: 064
     Dates: start: 20160930, end: 20170405
  5. NICOPATCH [Suspect]
     Active Substance: NICOTINE
     Indication: EX-TOBACCO USER
     Dosage: 7 MILLIGRAM DAILY;
     Route: 064
     Dates: start: 20170224, end: 20170516
  6. FERROUS SULFATE. [Suspect]
     Active Substance: FERROUS SULFATE
     Indication: NORMOCHROMIC NORMOCYTIC ANAEMIA
     Dosage: 1 DOSAGE FORMS DAILY;
     Route: 064
     Dates: start: 20170313, end: 20170914
  7. GABAPENTIN ARROW CAPSULES HARD 400MG [Suspect]
     Active Substance: GABAPENTIN
     Indication: DIABETIC NEUROPATHY
     Dosage: 800 MILLIGRAM DAILY;
     Route: 064
     Dates: start: 20160930
  8. RAMIPRIL. [Suspect]
     Active Substance: RAMIPRIL
     Indication: HYPERTENSION
     Dosage: 2.5 MILLIGRAM DAILY;
     Route: 064
     Dates: start: 20160930, end: 20170224
  9. PROPRANOLOL [Suspect]
     Active Substance: PROPRANOLOL HYDROCHLORIDE
     Dosage: 25 MILLIGRAM DAILY;
     Route: 064
     Dates: start: 20170720
  10. GABAPENTIN. [Suspect]
     Active Substance: GABAPENTIN
     Indication: PRODUCT USED FOR UNKNOWN INDICATION
     Dosage: 800 MILLIGRAM DAILY;
     Route: 064
     Dates: start: 20160930
  11. TARDYFERON [Suspect]
     Active Substance: FERROUS SULFATE
     Indication: NORMOCHROMIC NORMOCYTIC ANAEMIA
     Dosage: 1 DOSAGE FORMS DAILY;
     Route: 064
     Dates: start: 20170313, end: 20170914
  12. METHYLDOPA. [Suspect]
     Active Substance: METHYLDOPA
     Indication: HYPERTENSION
     Dosage: 1500 MILLIGRAM DAILY;
     Route: 064
     Dates: start: 20170720
  13. CALCIUM FOLINATE [Suspect]
     Active Substance: LEUCOVORIN CALCIUM
     Indication: NORMOCHROMIC NORMOCYTIC ANAEMIA
     Dosage: 5 MILLIGRAM DAILY;
     Route: 064
     Dates: start: 20170224, end: 20170313
  14. GABAPENTIN ARROW CAPSULES HARD 400MG [Suspect]
     Active Substance: GABAPENTIN
     Dosage: 400 MILLIGRAM DAILY;
     Route: 064
     Dates: start: 20160930
  15. AMOXICILLIN. [Suspect]
     Active Substance: AMOXICILLIN
     Dosage: 1 MILLIGRAM DAILY;
     Route: 064
     Dates: start: 201708, end: 20170811
  16. AMITRIPTYLINE HCL [Suspect]
     Active Substance: AMITRIPTYLINE
     Indication: DIABETIC NEUROPATHY
     Dosage: 2 DOSAGE FORMS DAILY;
     Route: 064
     Dates: start: 20160930, end: 20170914
  17. METFORMIN HYDROCHLORIDE. [Suspect]
     Active Substance: METFORMIN HYDROCHLORIDE
     Dosage: 1700 MILLIGRAM DAILY;
     Route: 064
     Dates: start: 20170804
  18. GABAPENTIN. [Suspect]
     Active Substance: GABAPENTIN
     Indication: PRODUCT USED FOR UNKNOWN INDICATION
     Dosage: 400 MILLIGRAM DAILY;
     Route: 064
     Dates: start: 20160930
  19. GABAPENTIN. [Suspect]
     Active Substance: GABAPENTIN
     Indication: PRODUCT USED FOR UNKNOWN INDICATION
     Dosage: 10 IU (INTERNATIONAL UNIT) DAILY;
     Route: 064
     Dates: start: 20160930, end: 20170224
  20. AMOXICILLIN. [Suspect]
     Active Substance: AMOXICILLIN
     Indication: PRODUCT USED FOR UNKNOWN INDICATION
     Dosage: 3 GRAM DAILY; QD
     Route: 064
     Dates: start: 20170804, end: 20170811
  21. TRAMADOL. [Suspect]
     Active Substance: TRAMADOL
     Indication: DIABETIC NEUROPATHY
     Dosage: 100 MILLIGRAM DAILY;
     Route: 064
     Dates: start: 20160930, end: 20170306
  22. HUMALOG [Suspect]
     Active Substance: INSULIN LISPRO
     Indication: TYPE 2 DIABETES MELLITUS
     Dosage: 21 UG/M2 DAILY;
     Route: 064
     Dates: start: 20170224, end: 20170224
  23. HUMALOG [Suspect]
     Active Substance: INSULIN LISPRO
     Dosage: 7 UG/M2 DAILY;
     Route: 064
     Dates: start: 20170224
  24. DIFFU K [Suspect]
     Active Substance: POTASSIUM CHLORIDE
     Dosage: 1200 MILLIGRAM DAILY;
     Route: 064
     Dates: start: 20170804
  25. FORLAX [Suspect]
     Active Substance: POLYETHYLENE GLYCOL 4000
     Indication: CONSTIPATION
     Dosage: 120 MILLIGRAM DAILY;
     Route: 064
     Dates: start: 20160930, end: 20170224
  26. FUROSEMIDE ARROW TABLETS [Suspect]
     Active Substance: FUROSEMIDE
     Indication: HYPERTENSION
     Route: 064
     Dates: start: 20170516
  27. TRAMADOL. [Suspect]
     Active Substance: TRAMADOL
     Indication: DIABETIC NEUROPATHY
     Dosage: 50 MILLIGRAM DAILY;
     Route: 064
     Dates: start: 20160930, end: 20170306
  28. FOLIC ACID. [Suspect]
     Active Substance: FOLIC ACID
     Indication: PRODUCT USED FOR UNKNOWN INDICATION
     Dosage: 5 MILLIGRAM DAILY;
     Route: 064
     Dates: start: 20170224, end: 20170313
  29. DIFFU K [Suspect]
     Active Substance: POTASSIUM CHLORIDE
     Indication: HYPOKALAEMIA
     Dosage: 3600 MILLIGRAM DAILY; 3600 MG, QD 1200 MG, QD (2 TO 3 TIMES PER DAY)
     Route: 064
     Dates: start: 20170804
  30. LARGACTIL [Suspect]
     Active Substance: CHLORPROMAZINE
     Indication: BIPOLAR I DISORDER
     Dosage: 25 MILLIGRAM DAILY; QD
     Route: 064
     Dates: start: 20170720
  31. INSULIN [Suspect]
     Active Substance: INSULIN NOS
     Indication: TYPE 2 DIABETES MELLITUS
     Route: 064
     Dates: start: 20161230, end: 20170224
  32. CHLORPROMAZINE HYDROCHLORIDE. [Suspect]
     Active Substance: CHLORPROMAZINE HYDROCHLORIDE
     Indication: PRODUCT USED FOR UNKNOWN INDICATION
     Dosage: 25 MILLIGRAM DAILY;
     Route: 064
     Dates: start: 20170720
  33. PROPRANOLOL [Suspect]
     Active Substance: PROPRANOLOL HYDROCHLORIDE
     Indication: HYPERTENSION
     Dosage: 80 MILLIGRAM DAILY;
     Route: 064
     Dates: start: 20170516
  34. FORLAX [Suspect]
     Active Substance: POLYETHYLENE GLYCOL 4000
     Indication: CONSTIPATION
     Route: 064
     Dates: start: 20160930, end: 20170224
  35. LOXEN L P 50 MG [Suspect]
     Active Substance: NICARDIPINE HYDROCHLORIDE
     Indication: HYPERTENSION
     Route: 064
     Dates: start: 20170313, end: 20170405
  36. INSULIN LISPRO [Suspect]
     Active Substance: INSULIN LISPRO
     Dosage: 7 UG/M2 DAILY;
     Route: 064
     Dates: start: 20170224
  37. ARIPIPRAZOLE. [Suspect]
     Active Substance: ARIPIPRAZOLE
     Indication: BIPOLAR I DISORDER
     Dosage: 10 MILLIGRAM DAILY;
     Route: 064
     Dates: start: 20160930, end: 20170224
  38. METFORMIN HYDROCHLORIDE. [Suspect]
     Active Substance: METFORMIN HYDROCHLORIDE
     Indication: TYPE 2 DIABETES MELLITUS
     Dosage: 1700 MILLIGRAM DAILY;
     Route: 064
     Dates: start: 20160930, end: 20170224
  39. METFORMIN HYDROCHLORIDE. [Suspect]
     Active Substance: METFORMIN HYDROCHLORIDE
     Dosage: 850 MILLIGRAM DAILY;
     Route: 064
     Dates: start: 20160930, end: 20170224
  40. LEVEMIR [Suspect]
     Active Substance: INSULIN DETEMIR
     Indication: TYPE 2 DIABETES MELLITUS
     Dosage: 10 IU (INTERNATIONAL UNIT) DAILY;
     Route: 064
     Dates: start: 20160930, end: 20170224
  41. LABETALOL HYDROCHLORIDE. [Suspect]
     Active Substance: LABETALOL HYDROCHLORIDE
     Indication: HYPERTENSION
     Dosage: 80 MILLIGRAM DAILY;
     Route: 064
     Dates: start: 20170516, end: 20170914
  42. NICARDIPINE [Suspect]
     Active Substance: NICARDIPINE
     Indication: HYPERTENSION
     Dosage: 50MG FORME LP X2/DAY
     Route: 064
     Dates: start: 20170405, end: 20170914
  43. LANTUS [Suspect]
     Active Substance: INSULIN GLARGINE
     Indication: TYPE 2 DIABETES MELLITUS
     Dosage: 20 IU (INTERNATIONAL UNIT) DAILY;
     Route: 064
     Dates: start: 20170224, end: 20170914
  44. LARGACTIL [Suspect]
     Active Substance: CHLORPROMAZINE
     Route: 064
  45. INSULIN LISPRO [Suspect]
     Active Substance: INSULIN LISPRO
     Indication: TYPE 2 DIABETES MELLITUS
     Dosage: 21 UG/M2 DAILY;
     Route: 064
     Dates: start: 20170224, end: 20170224
  46. LASIX [Suspect]
     Active Substance: FUROSEMIDE
     Dosage: 40 MILLIGRAM DAILY;
     Route: 064
  47. FOLINIC ACID [Suspect]
     Active Substance: LEUCOVORIN
     Indication: NORMOCHROMIC NORMOCYTIC ANAEMIA
     Dosage: QD
     Route: 064
     Dates: start: 20170224, end: 20170313
  48. AMOXICILLIN. [Suspect]
     Active Substance: AMOXICILLIN
     Dosage: 3 MILLIGRAM DAILY;
     Route: 064
     Dates: start: 20170804, end: 20170804
  49. FOLIC ACID. [Suspect]
     Active Substance: FOLIC ACID
     Indication: NORMOCHROMIC NORMOCYTIC ANAEMIA
     Dosage: 5 MILLIGRAM DAILY;
     Route: 064
     Dates: start: 20170313
  50. LOXEN L P 50 MG [Suspect]
     Active Substance: NICARDIPINE HYDROCHLORIDE
     Dosage: 50 MILLIGRAM DAILY;
     Route: 064
     Dates: start: 20170313, end: 20180405
  51. FUROSEMIDE ARROW TABLETS [Suspect]
     Active Substance: FUROSEMIDE
     Route: 064
     Dates: start: 201705

REACTIONS (5)
  - Premature baby [Recovered/Resolved]
  - Low birth weight baby [Unknown]
  - Neutropenia neonatal [Recovered/Resolved]
  - Foetal disorder [Unknown]
  - Foetal exposure during pregnancy [Unknown]

NARRATIVE: CASE EVENT DATE: 20170914
